FAERS Safety Report 23959825 (Version 1)
Quarter: 2024Q2

REPORT INFORMATION
  Report Type: Spontaneous
  Country: US (occurrence: US)
  Receive Date: 20240611
  Receipt Date: 20240611
  Transmission Date: 20240716
  Serious: No
  Sender: FDA-Public Use
  Company Number: US-TAKEDA-2024TUS057464

PATIENT
  Weight: 49 kg

DRUGS (1)
  1. VYVANSE [Suspect]
     Active Substance: LISDEXAMFETAMINE DIMESYLATE
     Indication: Product used for unknown indication
     Dosage: 70 MILLIGRAM
     Route: 065

REACTIONS (6)
  - Brain fog [Unknown]
  - Overweight [Unknown]
  - Discouragement [Unknown]
  - Apathy [Unknown]
  - Therapeutic product effect variable [Unknown]
  - Product availability issue [Unknown]
